FAERS Safety Report 8415393-8 (Version None)
Quarter: 2012Q2

REPORT INFORMATION
  Report Type: 
  Country: None (occurrence: None)
  Receive Date: 20120606
  Receipt Date: 20120601
  Transmission Date: 20120825
  Serious: Yes (Hospitalization)
  Sender: FDA-Public Use
  Company Number: PHHO2012DE008392

PATIENT
  Sex: Female
  Weight: 58.5 kg

DRUGS (9)
  1. BLINDED ACLASTA/ZOLEDRONATE [Suspect]
     Indication: OSTEOPOROSIS PROPHYLAXIS
     Dosage: DOUBLE BLINDED
     Dates: start: 20110329
  2. PLACEBO [Suspect]
     Indication: OSTEOPOROSIS PROPHYLAXIS
     Dosage: DOUBLE BLINDED
     Dates: start: 20110329
  3. REBIF [Concomitant]
     Indication: MULTIPLE SCLEROSIS
     Dosage: 44 MG, TID
     Route: 058
     Dates: start: 20050301
  4. VITAMIN D [Concomitant]
     Indication: OSTEOPOROSIS
     Dosage: 400 IE, QD
     Route: 048
     Dates: start: 20110301
  5. TAMSULOSIN HCL [Concomitant]
     Indication: INCONTINENCE
     Dosage: 4 MG, QD
     Route: 048
     Dates: start: 20040101
  6. BLINDED NO TREATMENT RECEIVED [Suspect]
     Indication: OSTEOPOROSIS PROPHYLAXIS
     Dosage: DOUBLE BLINDED
     Dates: start: 20110329
  7. CALCIUM [Concomitant]
     Indication: OSTEOPOROSIS
     Dosage: 500 MG, QD
     Route: 048
     Dates: start: 20110301
  8. ZOLEDRONOC ACID [Suspect]
     Indication: OSTEOPOROSIS PROPHYLAXIS
     Dosage: 100 ML, QD
     Route: 042
     Dates: start: 20120327
  9. ESCITALOPRAM [Concomitant]
     Indication: DEPRESSION
     Dosage: 10 MG, QD
     Route: 048
     Dates: start: 20100901

REACTIONS (3)
  - FALL [None]
  - LOSS OF CONSCIOUSNESS [None]
  - RETROGRADE AMNESIA [None]
